FAERS Safety Report 6200748-2 (Version None)
Quarter: 2009Q2

REPORT INFORMATION
  Report Type: 
  Country: None (occurrence: None)
  Receive Date: 20090522
  Receipt Date: 20090512
  Transmission Date: 20091009
  Serious: Yes (Other)
  Sender: FDA-Public Use
  Company Number: US-JNJCH-2009013179

PATIENT
  Age: 8 Year
  Sex: Female
  Weight: 22.7 kg

DRUGS (2)
  1. DRAMAMINE [Suspect]
     Indication: GASTROENTERITIS VIRAL
     Dosage: TEXT:UNSPECIFIED
     Route: 048
     Dates: start: 20090420, end: 20090420
  2. DEXMETHYLPHENIDATE HYDROCHLORIDE [Concomitant]
     Indication: DRUG USE FOR UNKNOWN INDICATION
     Dosage: TEXT:15 MG  THREE TIMES DAILY
     Route: 065

REACTIONS (9)
  - DEPRESSED LEVEL OF CONSCIOUSNESS [None]
  - DYSPNOEA [None]
  - GAIT DISTURBANCE [None]
  - HEART RATE INCREASED [None]
  - LETHARGY [None]
  - OFF LABEL USE [None]
  - PYREXIA [None]
  - VOMITING [None]
  - WHEEZING [None]
